FAERS Safety Report 23971528 (Version 1)
Quarter: 2024Q2

REPORT INFORMATION
  Report Type: Spontaneous
  Country: US (occurrence: None)
  Receive Date: 20240612
  Receipt Date: 20240612
  Transmission Date: 20240716
  Serious: Yes (unspecified)
  Sender: FDA-Public Use
  Company Number: None

PATIENT
  Age: 44 Year
  Sex: Female

DRUGS (1)
  1. REBIF [Suspect]
     Active Substance: INTERFERON BETA-1A
     Indication: Multiple sclerosis
     Dosage: 44MCG THREE TIMES WEEKLY

REACTIONS (5)
  - Pyrexia [None]
  - Pain [None]
  - Chills [None]
  - Therapy cessation [None]
  - Multiple sclerosis [None]
